FAERS Safety Report 5796540-3 (Version None)
Quarter: 2008Q2

REPORT INFORMATION
  Report Type: 
  Country: None (occurrence: None)
  Receive Date: 20080627
  Receipt Date: 20080617
  Transmission Date: 20081010
  Serious: Yes (Hospitalization)
  Sender: FDA-Public Use
  Company Number: 029624

PATIENT
  Age: 22 Year
  Sex: Female

DRUGS (1)
  1. CARBAMAZEPINE HCI(CARBAMAZEPINE) TABLET, 200MG [Suspect]
     Indication: BIPOLAR DISORDER
     Dosage: ORAL
     Route: 048

REACTIONS (6)
  - HAEMODIALYSIS [None]
  - HYPOTENSION [None]
  - LOSS OF CONSCIOUSNESS [None]
  - MENTAL STATUS CHANGES [None]
  - OVERDOSE [None]
  - THROMBOCYTOPENIA [None]
